FAERS Safety Report 4397563-1 (Version None)
Quarter: 2004Q3

REPORT INFORMATION
  Report Type: 
  Country: None (occurrence: None)
  Receive Date: 20040708
  Receipt Date: 20040622
  Transmission Date: 20050211
  Serious: Yes (Hospitalization)
  Sender: FDA-Public Use
  Company Number: 200410156BBE

PATIENT
  Age: 57 Year
  Sex: Male

DRUGS (163)
  1. HELIXATE FS [Suspect]
     Indication: FACTOR VIII DEFICIENCY
     Dosage: INTRAVENOUS
     Route: 042
     Dates: start: 20040414, end: 20040510
  2. HELIXATE FS [Suspect]
     Indication: PLEURECTOMY
     Dosage: INTRAVENOUS
     Route: 042
     Dates: start: 20040414, end: 20040510
  3. HELIXATE FS [Suspect]
     Indication: FACTOR VIII DEFICIENCY
     Dosage: INTRAVENOUS
     Route: 042
     Dates: start: 20040414, end: 20040510
  4. HELIXATE FS [Suspect]
     Indication: PLEURECTOMY
     Dosage: INTRAVENOUS
     Route: 042
     Dates: start: 20040414, end: 20040510
  5. HELIXATE FS [Suspect]
     Indication: FACTOR VIII DEFICIENCY
     Dosage: INTRAVENOUS
     Route: 042
     Dates: start: 20040414, end: 20040510
  6. HELIXATE FS [Suspect]
     Indication: PLEURECTOMY
     Dosage: INTRAVENOUS
     Route: 042
     Dates: start: 20040414, end: 20040510
  7. HELIXATE FS [Suspect]
     Indication: FACTOR VIII DEFICIENCY
     Dosage: INTRAVENOUS
     Route: 042
     Dates: start: 20040414, end: 20040510
  8. HELIXATE FS [Suspect]
     Indication: PLEURECTOMY
     Dosage: INTRAVENOUS
     Route: 042
     Dates: start: 20040414, end: 20040510
  9. HELIXATE FS [Suspect]
     Indication: FACTOR VIII DEFICIENCY
     Dosage: INTRAVENOUS
     Route: 042
     Dates: start: 20040414, end: 20040510
  10. HELIXATE FS [Suspect]
     Indication: PLEURECTOMY
     Dosage: INTRAVENOUS
     Route: 042
     Dates: start: 20040414, end: 20040510
  11. HELIXATE FS [Suspect]
     Indication: FACTOR VIII DEFICIENCY
     Dosage: INTRAVENOUS
     Route: 042
     Dates: start: 20040414, end: 20040510
  12. HELIXATE FS [Suspect]
     Indication: PLEURECTOMY
     Dosage: INTRAVENOUS
     Route: 042
     Dates: start: 20040414, end: 20040510
  13. HELIXATE FS [Suspect]
     Indication: FACTOR VIII DEFICIENCY
     Dosage: INTRAVENOUS
     Route: 042
     Dates: start: 20040414, end: 20040510
  14. HELIXATE FS [Suspect]
     Indication: PLEURECTOMY
     Dosage: INTRAVENOUS
     Route: 042
     Dates: start: 20040414, end: 20040510
  15. HELIXATE FS [Suspect]
     Indication: FACTOR VIII DEFICIENCY
     Dosage: INTRAVENOUS
     Route: 042
     Dates: start: 20040414, end: 20040510
  16. HELIXATE FS [Suspect]
     Indication: PLEURECTOMY
     Dosage: INTRAVENOUS
     Route: 042
     Dates: start: 20040414, end: 20040510
  17. HELIXATE FS [Suspect]
     Indication: FACTOR VIII DEFICIENCY
     Dosage: INTRAVENOUS
     Route: 042
     Dates: start: 20040414, end: 20040510
  18. HELIXATE FS [Suspect]
     Indication: PLEURECTOMY
     Dosage: INTRAVENOUS
     Route: 042
     Dates: start: 20040414, end: 20040510
  19. HELIXATE FS [Suspect]
     Indication: FACTOR VIII DEFICIENCY
     Dosage: INTRAVENOUS
     Route: 042
     Dates: start: 20040414, end: 20040510
  20. HELIXATE FS [Suspect]
     Indication: PLEURECTOMY
     Dosage: INTRAVENOUS
     Route: 042
     Dates: start: 20040414, end: 20040510
  21. HELIXATE FS [Suspect]
     Indication: FACTOR VIII DEFICIENCY
     Dosage: INTRAVENOUS
     Route: 042
     Dates: start: 20040414, end: 20040510
  22. HELIXATE FS [Suspect]
     Indication: PLEURECTOMY
     Dosage: INTRAVENOUS
     Route: 042
     Dates: start: 20040414, end: 20040510
  23. HELIXATE FS [Suspect]
     Indication: FACTOR VIII DEFICIENCY
     Dosage: INTRAVENOUS
     Route: 042
     Dates: start: 20040414, end: 20040510
  24. HELIXATE FS [Suspect]
     Indication: PLEURECTOMY
     Dosage: INTRAVENOUS
     Route: 042
     Dates: start: 20040414, end: 20040510
  25. HELIXATE FS [Suspect]
     Indication: FACTOR VIII DEFICIENCY
     Dosage: INTRAVENOUS
     Route: 042
     Dates: start: 20040414, end: 20040510
  26. HELIXATE FS [Suspect]
     Indication: PLEURECTOMY
     Dosage: INTRAVENOUS
     Route: 042
     Dates: start: 20040414, end: 20040510
  27. HELIXATE FS [Suspect]
     Indication: FACTOR VIII DEFICIENCY
     Dosage: INTRAVENOUS
     Route: 042
     Dates: start: 20040414, end: 20040510
  28. HELIXATE FS [Suspect]
     Indication: PLEURECTOMY
     Dosage: INTRAVENOUS
     Route: 042
     Dates: start: 20040414, end: 20040510
  29. HELIXATE FS [Suspect]
     Indication: FACTOR VIII DEFICIENCY
     Dosage: INTRAVENOUS
     Route: 042
     Dates: start: 20040414, end: 20040510
  30. HELIXATE FS [Suspect]
     Indication: PLEURECTOMY
     Dosage: INTRAVENOUS
     Route: 042
     Dates: start: 20040414, end: 20040510
  31. HELIXATE FS [Suspect]
     Indication: FACTOR VIII DEFICIENCY
     Dosage: INTRAVENOUS
     Route: 042
     Dates: start: 20040414, end: 20040510
  32. HELIXATE FS [Suspect]
     Indication: PLEURECTOMY
     Dosage: INTRAVENOUS
     Route: 042
     Dates: start: 20040414, end: 20040510
  33. HELIXATE FS [Suspect]
     Indication: FACTOR VIII DEFICIENCY
     Dosage: INTRAVENOUS
     Route: 042
     Dates: start: 20040414, end: 20040510
  34. HELIXATE FS [Suspect]
     Indication: PLEURECTOMY
     Dosage: INTRAVENOUS
     Route: 042
     Dates: start: 20040414, end: 20040510
  35. HELIXATE FS [Suspect]
     Indication: FACTOR VIII DEFICIENCY
     Dosage: INTRAVENOUS
     Route: 042
     Dates: start: 20040414, end: 20040510
  36. HELIXATE FS [Suspect]
     Indication: PLEURECTOMY
     Dosage: INTRAVENOUS
     Route: 042
     Dates: start: 20040414, end: 20040510
  37. HELIXATE FS [Suspect]
     Indication: FACTOR VIII DEFICIENCY
     Dosage: INTRAVENOUS
     Route: 042
     Dates: start: 20040414, end: 20040510
  38. HELIXATE FS [Suspect]
     Indication: PLEURECTOMY
     Dosage: INTRAVENOUS
     Route: 042
     Dates: start: 20040414, end: 20040510
  39. HELIXATE FS [Suspect]
     Indication: FACTOR VIII DEFICIENCY
     Dosage: INTRAVENOUS
     Route: 042
     Dates: start: 20040414, end: 20040510
  40. HELIXATE FS [Suspect]
     Indication: PLEURECTOMY
     Dosage: INTRAVENOUS
     Route: 042
     Dates: start: 20040414, end: 20040510
  41. HELIXATE FS [Suspect]
     Indication: FACTOR VIII DEFICIENCY
     Dosage: INTRAVENOUS
     Route: 042
     Dates: start: 20040414, end: 20040510
  42. HELIXATE FS [Suspect]
     Indication: PLEURECTOMY
     Dosage: INTRAVENOUS
     Route: 042
     Dates: start: 20040414, end: 20040510
  43. HELIXATE FS [Suspect]
     Indication: FACTOR VIII DEFICIENCY
     Dosage: INTRAVENOUS
     Route: 042
     Dates: start: 20040414, end: 20040510
  44. HELIXATE FS [Suspect]
     Indication: PLEURECTOMY
     Dosage: INTRAVENOUS
     Route: 042
     Dates: start: 20040414, end: 20040510
  45. HELIXATE FS [Suspect]
     Indication: FACTOR VIII DEFICIENCY
     Dosage: INTRAVENOUS
     Route: 042
     Dates: start: 20040414, end: 20040510
  46. HELIXATE FS [Suspect]
     Indication: PLEURECTOMY
     Dosage: INTRAVENOUS
     Route: 042
     Dates: start: 20040414, end: 20040510
  47. HELIXATE FS [Suspect]
     Indication: FACTOR VIII DEFICIENCY
     Dosage: INTRAVENOUS
     Route: 042
     Dates: start: 20040414, end: 20040510
  48. HELIXATE FS [Suspect]
     Indication: PLEURECTOMY
     Dosage: INTRAVENOUS
     Route: 042
     Dates: start: 20040414, end: 20040510
  49. HELIXATE FS [Suspect]
     Indication: FACTOR VIII DEFICIENCY
     Dosage: INTRAVENOUS
     Route: 042
     Dates: start: 20040414, end: 20040510
  50. HELIXATE FS [Suspect]
     Indication: PLEURECTOMY
     Dosage: INTRAVENOUS
     Route: 042
     Dates: start: 20040414, end: 20040510
  51. HELIXATE FS [Suspect]
     Indication: FACTOR VIII DEFICIENCY
     Dosage: INTRAVENOUS
     Route: 042
     Dates: start: 20040414, end: 20040510
  52. HELIXATE FS [Suspect]
     Indication: PLEURECTOMY
     Dosage: INTRAVENOUS
     Route: 042
     Dates: start: 20040414, end: 20040510
  53. HELIXATE FS [Suspect]
     Indication: FACTOR VIII DEFICIENCY
     Dosage: INTRAVENOUS
     Route: 042
     Dates: start: 20040414, end: 20040510
  54. HELIXATE FS [Suspect]
     Indication: PLEURECTOMY
     Dosage: INTRAVENOUS
     Route: 042
     Dates: start: 20040414, end: 20040510
  55. HELIXATE FS [Suspect]
     Indication: FACTOR VIII DEFICIENCY
     Dosage: INTRAVENOUS
     Route: 042
     Dates: start: 20040414, end: 20040510
  56. HELIXATE FS [Suspect]
     Indication: PLEURECTOMY
     Dosage: INTRAVENOUS
     Route: 042
     Dates: start: 20040414, end: 20040510
  57. HELIXATE FS [Suspect]
     Indication: FACTOR VIII DEFICIENCY
     Dosage: INTRAVENOUS
     Route: 042
     Dates: start: 20040414, end: 20040510
  58. HELIXATE FS [Suspect]
     Indication: PLEURECTOMY
     Dosage: INTRAVENOUS
     Route: 042
     Dates: start: 20040414, end: 20040510
  59. HELIXATE FS [Suspect]
     Indication: FACTOR VIII DEFICIENCY
     Dosage: INTRAVENOUS
     Route: 042
     Dates: start: 20040414, end: 20040510
  60. HELIXATE FS [Suspect]
     Indication: PLEURECTOMY
     Dosage: INTRAVENOUS
     Route: 042
     Dates: start: 20040414, end: 20040510
  61. HELIXATE FS [Suspect]
     Indication: FACTOR VIII DEFICIENCY
     Dosage: INTRAVENOUS
     Route: 042
     Dates: start: 20040414, end: 20040510
  62. HELIXATE FS [Suspect]
     Indication: PLEURECTOMY
     Dosage: INTRAVENOUS
     Route: 042
     Dates: start: 20040414, end: 20040510
  63. HELIXATE FS [Suspect]
     Indication: FACTOR VIII DEFICIENCY
     Dosage: INTRAVENOUS
     Route: 042
     Dates: start: 20040414, end: 20040510
  64. HELIXATE FS [Suspect]
     Indication: PLEURECTOMY
     Dosage: INTRAVENOUS
     Route: 042
     Dates: start: 20040414, end: 20040510
  65. HELIXATE FS [Suspect]
     Indication: FACTOR VIII DEFICIENCY
     Dosage: INTRAVENOUS
     Route: 042
     Dates: start: 20040414, end: 20040510
  66. HELIXATE FS [Suspect]
     Indication: PLEURECTOMY
     Dosage: INTRAVENOUS
     Route: 042
     Dates: start: 20040414, end: 20040510
  67. HELIXATE FS [Suspect]
     Indication: FACTOR VIII DEFICIENCY
     Dosage: INTRAVENOUS
     Route: 042
     Dates: start: 20040414, end: 20040510
  68. HELIXATE FS [Suspect]
     Indication: PLEURECTOMY
     Dosage: INTRAVENOUS
     Route: 042
     Dates: start: 20040414, end: 20040510
  69. HELIXATE FS [Suspect]
     Indication: FACTOR VIII DEFICIENCY
     Dosage: INTRAVENOUS
     Route: 042
     Dates: start: 20040414, end: 20040510
  70. HELIXATE FS [Suspect]
     Indication: PLEURECTOMY
     Dosage: INTRAVENOUS
     Route: 042
     Dates: start: 20040414, end: 20040510
  71. HELIXATE FS [Suspect]
     Indication: FACTOR VIII DEFICIENCY
     Dosage: INTRAVENOUS
     Route: 042
     Dates: start: 20040414, end: 20040510
  72. HELIXATE FS [Suspect]
     Indication: PLEURECTOMY
     Dosage: INTRAVENOUS
     Route: 042
     Dates: start: 20040414, end: 20040510
  73. HELIXATE FS [Suspect]
     Indication: FACTOR VIII DEFICIENCY
     Dosage: INTRAVENOUS
     Route: 042
     Dates: start: 20040414, end: 20040510
  74. HELIXATE FS [Suspect]
     Indication: PLEURECTOMY
     Dosage: INTRAVENOUS
     Route: 042
     Dates: start: 20040414, end: 20040510
  75. HELIXATE FS [Suspect]
     Indication: FACTOR VIII DEFICIENCY
     Dosage: INTRAVENOUS
     Route: 042
     Dates: start: 20040414, end: 20040510
  76. HELIXATE FS [Suspect]
     Indication: PLEURECTOMY
     Dosage: INTRAVENOUS
     Route: 042
     Dates: start: 20040414, end: 20040510
  77. HELIXATE FS [Suspect]
     Indication: FACTOR VIII DEFICIENCY
     Dosage: INTRAVENOUS
     Route: 042
     Dates: start: 20040414, end: 20040510
  78. HELIXATE FS [Suspect]
     Indication: PLEURECTOMY
     Dosage: INTRAVENOUS
     Route: 042
     Dates: start: 20040414, end: 20040510
  79. HELIXATE FS [Suspect]
     Indication: FACTOR VIII DEFICIENCY
     Dosage: INTRAVENOUS
     Route: 042
     Dates: start: 20040414, end: 20040510
  80. HELIXATE FS [Suspect]
     Indication: PLEURECTOMY
     Dosage: INTRAVENOUS
     Route: 042
     Dates: start: 20040414, end: 20040510
  81. HELIXATE FS [Suspect]
     Indication: FACTOR VIII DEFICIENCY
     Dosage: INTRAVENOUS
     Route: 042
     Dates: start: 20040414, end: 20040510
  82. HELIXATE FS [Suspect]
     Indication: PLEURECTOMY
     Dosage: INTRAVENOUS
     Route: 042
     Dates: start: 20040414, end: 20040510
  83. HELIXATE FS [Suspect]
     Indication: FACTOR VIII DEFICIENCY
     Dosage: INTRAVENOUS
     Route: 042
     Dates: start: 20040414, end: 20040510
  84. HELIXATE FS [Suspect]
     Indication: PLEURECTOMY
     Dosage: INTRAVENOUS
     Route: 042
     Dates: start: 20040414, end: 20040510
  85. HELIXATE FS [Suspect]
     Indication: FACTOR VIII DEFICIENCY
     Dosage: INTRAVENOUS
     Route: 042
     Dates: start: 20040414, end: 20040510
  86. HELIXATE FS [Suspect]
     Indication: PLEURECTOMY
     Dosage: INTRAVENOUS
     Route: 042
     Dates: start: 20040414, end: 20040510
  87. HELIXATE FS [Suspect]
     Indication: FACTOR VIII DEFICIENCY
     Dosage: INTRAVENOUS
     Route: 042
     Dates: start: 20040414, end: 20040510
  88. HELIXATE FS [Suspect]
     Indication: PLEURECTOMY
     Dosage: INTRAVENOUS
     Route: 042
     Dates: start: 20040414, end: 20040510
  89. HELIXATE FS [Suspect]
     Indication: FACTOR VIII DEFICIENCY
     Dosage: INTRAVENOUS
     Route: 042
     Dates: start: 20040414, end: 20040510
  90. HELIXATE FS [Suspect]
     Indication: PLEURECTOMY
     Dosage: INTRAVENOUS
     Route: 042
     Dates: start: 20040414, end: 20040510
  91. HELIXATE FS [Suspect]
     Indication: FACTOR VIII DEFICIENCY
     Dosage: INTRAVENOUS
     Route: 042
     Dates: start: 20040414, end: 20040510
  92. HELIXATE FS [Suspect]
     Indication: PLEURECTOMY
     Dosage: INTRAVENOUS
     Route: 042
     Dates: start: 20040414, end: 20040510
  93. HELIXATE FS [Suspect]
     Indication: FACTOR VIII DEFICIENCY
     Dosage: INTRAVENOUS
     Route: 042
     Dates: start: 20040414, end: 20040510
  94. HELIXATE FS [Suspect]
     Indication: PLEURECTOMY
     Dosage: INTRAVENOUS
     Route: 042
     Dates: start: 20040414, end: 20040510
  95. HELIXATE FS [Suspect]
     Indication: FACTOR VIII DEFICIENCY
     Dosage: INTRAVENOUS
     Route: 042
     Dates: start: 20040414, end: 20040510
  96. HELIXATE FS [Suspect]
     Indication: PLEURECTOMY
     Dosage: INTRAVENOUS
     Route: 042
     Dates: start: 20040414, end: 20040510
  97. HELIXATE FS [Suspect]
     Indication: FACTOR VIII DEFICIENCY
     Dosage: INTRAVENOUS
     Route: 042
     Dates: start: 20040414, end: 20040510
  98. HELIXATE FS [Suspect]
     Indication: PLEURECTOMY
     Dosage: INTRAVENOUS
     Route: 042
     Dates: start: 20040414, end: 20040510
  99. HELIXATE FS [Suspect]
     Indication: FACTOR VIII DEFICIENCY
     Dosage: INTRAVENOUS
     Route: 042
     Dates: start: 20040414, end: 20040510
  100. HELIXATE FS [Suspect]
     Indication: PLEURECTOMY
     Dosage: INTRAVENOUS
     Route: 042
     Dates: start: 20040414, end: 20040510
  101. HELIXATE FS [Suspect]
     Indication: FACTOR VIII DEFICIENCY
     Dosage: INTRAVENOUS
     Route: 042
     Dates: start: 20040414, end: 20040510
  102. HELIXATE FS [Suspect]
     Indication: PLEURECTOMY
     Dosage: INTRAVENOUS
     Route: 042
     Dates: start: 20040414, end: 20040510
  103. HELIXATE FS [Suspect]
  104. HELIXATE FS [Suspect]
  105. HELIXATE FS [Suspect]
  106. HELIXATE FS [Suspect]
  107. HELIXATE FS [Suspect]
  108. HELIXATE FS [Suspect]
  109. HELIXATE FS [Suspect]
  110. HELIXATE FS [Suspect]
  111. HELIXATE FS [Suspect]
  112. HELIXATE FS [Suspect]
  113. HELIXATE FS [Suspect]
  114. HELIXATE FS [Suspect]
  115. HELIXATE FS [Suspect]
  116. HELIXATE FS [Suspect]
  117. HELIXATE FS [Suspect]
  118. HELIXATE FS [Suspect]
  119. HELIXATE FS [Suspect]
  120. HELIXATE FS [Suspect]
  121. HELIXATE FS [Suspect]
  122. HELIXATE FS [Suspect]
  123. HELIXATE FS [Suspect]
  124. HELIXATE FS [Suspect]
  125. HELIXATE FS [Suspect]
  126. HELIXATE FS [Suspect]
  127. HELIXATE FS [Suspect]
  128. HELIXATE FS [Suspect]
  129. HELIXATE FS [Suspect]
  130. HELIXATE FS [Suspect]
  131. HELIXATE FS [Suspect]
  132. HELIXATE FS [Suspect]
  133. HELIXATE FS [Suspect]
  134. HELIXATE FS [Suspect]
  135. HELIXATE FS [Suspect]
  136. HELIXATE FS [Suspect]
  137. HELIXATE FS [Suspect]
  138. HELIXATE FS [Suspect]
  139. HELIXATE FS [Suspect]
  140. HELIXATE FS [Suspect]
  141. HELIXATE FS [Suspect]
  142. HELIXATE FS [Suspect]
  143. HELIXATE FS [Suspect]
  144. HELIXATE FS [Suspect]
  145. HELIXATE FS [Suspect]
  146. HELIXATE FS [Suspect]
  147. HELIXATE FS [Suspect]
  148. HELIXATE FS [Suspect]
  149. HELIXATE FS [Suspect]
  150. HELIXATE FS [Suspect]
  151. HELIXATE FS [Suspect]
  152. HELIXATE FS [Suspect]
  153. SUFENTA [Concomitant]
  154. DIPRIVAN [Concomitant]
  155. TRACRIUM ^BURROUGHS WELLCOME^ [Concomitant]
  156. EPHEDRINE [Concomitant]
  157. KETAMINE HCL [Concomitant]
  158. ACUPAN [Concomitant]
  159. SOPHIDONE [Concomitant]
  160. MORPHINE SULFATE [Concomitant]
  161. DOLIPRANE [Concomitant]
  162. RIVOTRIL [Concomitant]
  163. RED BLOOD CELL CONCENTRATES [Concomitant]

REACTIONS (8)
  - ACUTE RESPIRATORY DISTRESS SYNDROME [None]
  - HYPOXIA [None]
  - INTERSTITIAL LUNG DISEASE [None]
  - LEUKOCYTOSIS [None]
  - LUNG DISORDER [None]
  - MONOCYTOSIS [None]
  - PNEUMONIA [None]
  - RESPIRATORY DISTRESS [None]
